FAERS Safety Report 20292682 (Version 1)
Quarter: 2022Q1

REPORT INFORMATION
  Report Type: Spontaneous
  Country: FR (occurrence: FR)
  Receive Date: 20220104
  Receipt Date: 20220104
  Transmission Date: 20220423
  Serious: Yes (Hospitalization, Other)
  Sender: FDA-Public Use
  Company Number: None

PATIENT
  Age: 72 Year
  Sex: Female
  Weight: 58.2 kg

DRUGS (2)
  1. ALFACALCIDOL [Suspect]
     Active Substance: ALFACALCIDOL
     Indication: Post procedural hypoparathyroidism
     Dosage: 2 UG, QD
     Route: 048
     Dates: start: 1991
  2. IRBESARTAN [Suspect]
     Active Substance: IRBESARTAN
     Indication: Hypertension
     Dosage: 150MG/D, LONG-TERM
     Route: 048
     Dates: end: 20210317

REACTIONS (2)
  - Prerenal failure [Recovered/Resolved]
  - Hypercalcaemia [Recovered/Resolved]
